FAERS Safety Report 5623497-8 (Version None)
Quarter: 2008Q1

REPORT INFORMATION
  Report Type: 
  Country: None (occurrence: None)
  Receive Date: 20080212
  Receipt Date: 20080131
  Transmission Date: 20080703
  Serious: Yes (Other)
  Sender: FDA-Public Use
  Company Number: PFIZER INC-2008011075

PATIENT
  Sex: Male
  Weight: 98.181 kg

DRUGS (3)
  1. TIKOSYN [Suspect]
     Indication: ATRIAL FIBRILLATION
     Route: 048
  2. NASONEX [Suspect]
  3. TOPROL-XL [Concomitant]
     Route: 048

REACTIONS (4)
  - ATRIAL FIBRILLATION [None]
  - EPIDIDYMITIS [None]
  - PROSTATITIS [None]
  - URINARY TRACT INFECTION [None]
